FAERS Safety Report 21568512 (Version 3)
Quarter: 2022Q4

REPORT INFORMATION
  Report Type: Report from Study
  Country: US (occurrence: US)
  Receive Date: 20221108
  Receipt Date: 20221128
  Transmission Date: 20230112
  Serious: No
  Sender: FDA-Public Use
  Company Number: US-AGIOS-2211US03170

PATIENT
  Sex: Male

DRUGS (2)
  1. MITAPIVAT [Suspect]
     Active Substance: MITAPIVAT
     Indication: Pyruvate kinase deficiency anaemia
     Dosage: 20 MILLIGRAM, BID
     Route: 048
     Dates: start: 20220416
  2. MITAPIVAT [Suspect]
     Active Substance: MITAPIVAT
     Dosage: 50 UNK
     Route: 048
     Dates: start: 20220416

REACTIONS (4)
  - Food poisoning [Recovered/Resolved]
  - Haemoglobin decreased [Recovered/Resolved]
  - Serum ferritin increased [Recovered/Resolved]
  - Oral pain [Recovered/Resolved]
